FAERS Safety Report 17227676 (Version 2)
Quarter: 2021Q1

REPORT INFORMATION
  Report Type: Spontaneous
  Country: US (occurrence: US)
  Receive Date: 20200103
  Receipt Date: 20210302
  Transmission Date: 20210419
  Serious: Yes (Hospitalization, Disabling, Other)
  Sender: FDA-Public Use
  Company Number: US-ASTRAZENECA-2019SF91789

PATIENT
  Age: 18898 Day
  Sex: Female

DRUGS (79)
  1. CENTRUM SILVER [Concomitant]
     Active Substance: MINERALS\VITAMINS
     Indication: HYPOVITAMINOSIS
  2. PEPTO?BISMOL [Concomitant]
     Active Substance: BISMUTH SUBSALICYLATE
  3. KLOR?CON [Concomitant]
     Active Substance: POTASSIUM CHLORIDE
  4. PROAIR HFA [Concomitant]
     Active Substance: ALBUTEROL SULFATE
  5. HYDROCHLOROTHIAZIDE. [Concomitant]
     Active Substance: HYDROCHLOROTHIAZIDE
  6. VITAMIN B12 [Concomitant]
     Active Substance: CYANOCOBALAMIN
  7. KAYEXALATE [Concomitant]
     Active Substance: SODIUM POLYSTYRENE SULFONATE
  8. PENICILLIN VK [Concomitant]
     Active Substance: PENICILLIN V POTASSIUM
  9. HEPARIN [Concomitant]
     Active Substance: HEPARIN SODIUM
  10. CLOTRIMAZOLE. [Concomitant]
     Active Substance: CLOTRIMAZOLE
  11. POLYETHYLENE GLYCOL [Concomitant]
     Active Substance: POLYETHYLENE GLYCOLS
  12. CICLOPIROX. [Concomitant]
     Active Substance: CICLOPIROX
  13. CHANTIX [Concomitant]
     Active Substance: VARENICLINE TARTRATE
  14. SULFAMETHOXAZOLE?TMP [Concomitant]
     Active Substance: SULFAMETHOXAZOLE\TRIMETHOPRIM
  15. MECLIZINE [Concomitant]
     Active Substance: MECLIZINE HYDROCHLORIDE
  16. CLOPIDOGREL BISULFATE. [Concomitant]
     Active Substance: CLOPIDOGREL BISULFATE
  17. NEXIUM [Suspect]
     Active Substance: ESOMEPRAZOLE MAGNESIUM
     Indication: GASTROOESOPHAGEAL REFLUX DISEASE
     Route: 048
     Dates: start: 201201, end: 201601
  18. TIZANIDINE. [Concomitant]
     Active Substance: TIZANIDINE
     Indication: MUSCLE SPASMS
  19. ASPIRIN. [Concomitant]
     Active Substance: ASPIRIN
     Indication: MYOCARDIAL INFARCTION
  20. CLOPIDOGREL [Concomitant]
     Active Substance: CLOPIDOGREL BISULFATE
  21. FOLIC ACID. [Concomitant]
     Active Substance: FOLIC ACID
  22. HUMALOG [Concomitant]
     Active Substance: INSULIN LISPRO
  23. TOBRAMYCIN. [Concomitant]
     Active Substance: TOBRAMYCIN
  24. TAMIFLU [Concomitant]
     Active Substance: OSELTAMIVIR PHOSPHATE
  25. INVOKANA [Concomitant]
     Active Substance: CANAGLIFLOZIN
  26. DILTIAZEM. [Concomitant]
     Active Substance: DILTIAZEM
  27. FLUTICASONE PROPIONATE. [Concomitant]
     Active Substance: FLUTICASONE PROPIONATE
  28. IRBESARTAN. [Concomitant]
     Active Substance: IRBESARTAN
  29. BENZONATATE. [Concomitant]
     Active Substance: BENZONATATE
  30. JANUVIA [Concomitant]
     Active Substance: SITAGLIPTIN PHOSPHATE
  31. BREO ELLIPTA [Concomitant]
     Active Substance: FLUTICASONE FUROATE\VILANTEROL TRIFENATATE
  32. MEDROL [Concomitant]
     Active Substance: METHYLPREDNISOLONE
  33. ALCOHOL. [Concomitant]
     Active Substance: ALCOHOL
  34. REQUIP [Concomitant]
     Active Substance: ROPINIROLE HYDROCHLORIDE
  35. LISINOPRIL. [Concomitant]
     Active Substance: LISINOPRIL
     Indication: HYPERTENSION
  36. BENADRYL [Concomitant]
     Active Substance: DIPHENHYDRAMINE HYDROCHLORIDE
     Indication: HYPERSENSITIVITY
  37. HYDRALAZINE [Concomitant]
     Active Substance: HYDRALAZINE HYDROCHLORIDE
  38. AFLURIA NOS [Concomitant]
     Active Substance: INFLUENZA VIRUS VACCINE TRIVALENT TYPE A+B AFLURIA
  39. PROMETHAZINE [Concomitant]
     Active Substance: PROMETHAZINE HYDROCHLORIDE
  40. SERTRALINE HYDROCHLORIDE. [Concomitant]
     Active Substance: SERTRALINE HYDROCHLORIDE
  41. EZETIMIBE. [Concomitant]
     Active Substance: EZETIMIBE
  42. KETOCONAZOLE. [Concomitant]
     Active Substance: KETOCONAZOLE
  43. LIDOCAINE. [Concomitant]
     Active Substance: LIDOCAINE
  44. METHADONE [Concomitant]
     Active Substance: METHADONE HYDROCHLORIDE
  45. TETRACYCLINE [Concomitant]
     Active Substance: TETRACYCLINE
  46. NOVOLOG [Concomitant]
     Active Substance: INSULIN ASPART
     Indication: DIABETES MELLITUS
  47. LEVEMIR [Concomitant]
     Active Substance: INSULIN DETEMIR
     Indication: DIABETES MELLITUS
  48. CARVEDILOL. [Concomitant]
     Active Substance: CARVEDILOL
     Indication: HYPERTENSION
  49. AMOXICILLIN. [Concomitant]
     Active Substance: AMOXICILLIN
  50. HYDROCODONE?APAP [Concomitant]
     Active Substance: ACETAMINOPHEN\HYDROCODONE
  51. AMOX TR?K CLV [Concomitant]
     Active Substance: AMOXICILLIN\CLAVULANATE POTASSIUM
  52. BYDUREON [Concomitant]
     Active Substance: EXENATIDE
  53. ATORVASTATIN [Concomitant]
     Active Substance: ATORVASTATIN
  54. ONDANSETRON [Concomitant]
     Active Substance: ONDANSETRON
  55. PRODIGY [Concomitant]
  56. DICLOFENAC [Concomitant]
     Active Substance: DICLOFENAC
  57. DICLOFENAC SODIUM. [Concomitant]
     Active Substance: DICLOFENAC SODIUM
  58. ATORVASTATIN CALCIUM. [Concomitant]
     Active Substance: ATORVASTATIN CALCIUM
  59. DEXTROSE. [Concomitant]
     Active Substance: DEXTROSE
  60. NEXIUM [Suspect]
     Active Substance: ESOMEPRAZOLE MAGNESIUM
     Indication: GASTROOESOPHAGEAL REFLUX DISEASE
     Route: 048
     Dates: start: 2012, end: 2018
  61. TUMS [Concomitant]
     Active Substance: CALCIUM CARBONATE
  62. AMLODIPINE BESYLATE. [Concomitant]
     Active Substance: AMLODIPINE BESYLATE
  63. ISOSORBIDE MONOHYDRATE [Concomitant]
  64. BUMETANIDE. [Concomitant]
     Active Substance: BUMETANIDE
  65. DILTIAZEM HYDROCHLORIDE. [Concomitant]
     Active Substance: DILTIAZEM HYDROCHLORIDE
  66. BARIUM SULFATE [Concomitant]
     Active Substance: BARIUM SULFATE
  67. AMINOPHYLLINE. [Concomitant]
     Active Substance: AMINOPHYLLINE
  68. NEXIUM [Suspect]
     Active Substance: ESOMEPRAZOLE MAGNESIUM
     Indication: GASTROOESOPHAGEAL REFLUX DISEASE
     Route: 048
     Dates: start: 201201, end: 201807
  69. ERYTHROMYCIN. [Concomitant]
     Active Substance: ERYTHROMYCIN
  70. BUTALBITAL [Concomitant]
     Active Substance: BUTALBITAL
  71. PATADAY [Concomitant]
     Active Substance: OLOPATADINE HYDROCHLORIDE
  72. TRULICITY [Concomitant]
     Active Substance: DULAGLUTIDE
  73. METOCLOPRAMIDE. [Concomitant]
     Active Substance: METOCLOPRAMIDE
  74. ARIPIPRAZOLE. [Concomitant]
     Active Substance: ARIPIPRAZOLE
  75. BUPRENORPHINE. [Concomitant]
     Active Substance: BUPRENORPHINE
  76. CLARITIN [Concomitant]
     Active Substance: LORATADINE
     Indication: HYPERSENSITIVITY
  77. AZITHROMYCIN ANHYDROUS. [Concomitant]
     Active Substance: AZITHROMYCIN ANHYDROUS
  78. AMMONIUM LACTATE. [Concomitant]
     Active Substance: AMMONIUM LACTATE
  79. NICOTINE. [Concomitant]
     Active Substance: NICOTINE

REACTIONS (7)
  - Acute kidney injury [Not Recovered/Not Resolved]
  - Chronic kidney disease [Unknown]
  - Renal failure [Unknown]
  - Renal tubular necrosis [Unknown]
  - Tubulointerstitial nephritis [Unknown]
  - Nephrogenic anaemia [Unknown]
  - End stage renal disease [Unknown]

NARRATIVE: CASE EVENT DATE: 20160126
